FAERS Safety Report 4442103-1 (Version None)
Quarter: 2004Q3

REPORT INFORMATION
  Report Type: 
  Country: None (occurrence: None)
  Receive Date: 20040903
  Receipt Date: 20040616
  Transmission Date: 20050211
  Serious: Yes (Hospitalization)
  Sender: FDA-Public Use
  Company Number: 2004UW12542

PATIENT
  Age: 56 Year
  Sex: Female
  Weight: 60.3284 kg

DRUGS (3)
  1. CRESTOR [Suspect]
     Indication: BLOOD CHOLESTEROL INCREASED
     Dosage: 10 MG PO
     Route: 048
     Dates: start: 20031219, end: 20040512
  2. ZOCOR [Suspect]
  3. ZOCOR [Suspect]
     Dates: start: 20040512

REACTIONS (10)
  - ANXIETY [None]
  - ASTHENIA [None]
  - BLOOD URINE [None]
  - GALLBLADDER DISORDER [None]
  - GASTRITIS [None]
  - HAEMATOCHEZIA [None]
  - LIVER FUNCTION TEST ABNORMAL [None]
  - MUSCLE DISORDER [None]
  - RASH [None]
  - URINARY TRACT INFECTION [None]
